FAERS Safety Report 4500489-3 (Version None)
Quarter: 2004Q3

REPORT INFORMATION
  Report Type: 
  Country: None (occurrence: None)
  Receive Date: 20040928
  Receipt Date: 20040827
  Transmission Date: 20050211
  Serious: No
  Sender: FDA-Public Use
  Company Number: 04P-163-0271699-00

PATIENT
  Age: 47 Year
  Sex: Female

DRUGS (9)
  1. HUMIRA [Suspect]
     Indication: RHEUMATOID ARTHRITIS
     Dosage: 40 MG, 1 IN 2 WK, SUBCUTANEOUS
     Route: 058
     Dates: start: 20040826
  2. METHOTREXATE SODIUM [Concomitant]
  3. FOLIC ACID [Concomitant]
  4. HYDROXYCHLOROQUINE PHOSPHATE [Concomitant]
  5. CELECOXIB [Concomitant]
  6. AMITRIPTYLINE HCL [Concomitant]
  7. TRAMADOL HCL [Concomitant]
  8. METOPROLOL SUCCINATE [Concomitant]
  9. HYDROCHLOROTHIAZIDE [Concomitant]

REACTIONS (3)
  - FACE OEDEMA [None]
  - INJECTION SITE SWELLING [None]
  - OEDEMA PERIPHERAL [None]
